FAERS Safety Report 5163204-9 (Version None)
Quarter: 2006Q4

REPORT INFORMATION
  Report Type: 
  Country: None (occurrence: None)
  Receive Date: 20061204
  Receipt Date: 20061124
  Transmission Date: 20070319
  Serious: No
  Sender: FDA-Public Use
  Company Number: 2006AP05698

PATIENT

DRUGS (3)
  1. SEROQUEL [Suspect]
     Route: 048
  2. VALPROATE SODIUM [Suspect]
  3. CLOZAPINE [Concomitant]

REACTIONS (1)
  - NEUTROPENIA [None]
